FAERS Safety Report 8828010 (Version 2)
Quarter: 2012Q4

REPORT INFORMATION
  Report Type: 
  Country: UG (occurrence: UG)
  Receive Date: 20121005
  Receipt Date: 20121012
  Transmission Date: 20130627
  Serious: Yes (Death, Other)
  Sender: FDA-Public Use
  Company Number: UG-RANBAXY-2012RR-60813

PATIENT
  Age: 35 Year
  Sex: Male

DRUGS (11)
  1. FLUCONAZOLE [Suspect]
     Indication: MENINGITIS CRYPTOCOCCAL
     Dosage: 400 mg/day
     Route: 065
  2. FLUCONAZOLE [Suspect]
     Indication: MENINGITIS CRYPTOCOCCAL
     Dosage: 200 mg/day
     Route: 065
  3. FLUCONAZOLE [Suspect]
     Indication: MENINGITIS CRYPTOCOCCAL
     Dosage: 800 mg/day
     Route: 065
  4. FLUCONAZOLE [Suspect]
     Indication: MENINGITIS CRYPTOCOCCAL
     Dosage: 400 mg/day
     Route: 065
  5. ZIDOVUDINE [Suspect]
     Indication: ACQUIRED IMMUNODEFICIENCY SYNDROME
     Dosage: UNK
     Route: 065
  6. LAMIVUDINE [Suspect]
     Indication: ACQUIRED IMMUNODEFICIENCY SYNDROME
     Dosage: UNK
     Route: 065
  7. EFAVIRENZ [Suspect]
     Indication: ACQUIRED IMMUNODEFICIENCY SYNDROME
     Dosage: UNK
     Route: 065
  8. AMPHOTERICIN B [Suspect]
     Indication: MENINGITIS CRYPTOCOCCAL
     Dosage: 0.7 mg/kg/day
     Route: 065
  9. PREDNISOLONE [Suspect]
     Indication: IMMUNE RECONSTITUTION SYNDROME
     Dosage: 60 mg/day
     Route: 065
  10. PREDNISOLONE [Suspect]
     Indication: IMMUNE RECONSTITUTION SYNDROME
     Dosage: 10 mg/week over 6 weeks
     Route: 065
  11. CO-TRIMOXAZOLE [Suspect]
     Indication: PROPHYLAXIS
     Dosage: daily
     Route: 065

REACTIONS (4)
  - Immune reconstitution inflammatory syndrome [Unknown]
  - Meningitis cryptococcal [Unknown]
  - Drug resistance [Unknown]
  - Hydrocephalus [Unknown]
